FAERS Safety Report 9318005 (Version 1)
Quarter: 2013Q2

REPORT INFORMATION
  Report Type: Spontaneous
  Country: US (occurrence: US)
  Receive Date: 20130530
  Receipt Date: 20130530
  Transmission Date: 20140414
  Serious: Yes (Other)
  Sender: FDA-Public Use
  Company Number: US-GLAXOSMITHKLINE-A0999957A

PATIENT
  Age: 64 Year
  Sex: Male

DRUGS (5)
  1. VENTOLIN [Suspect]
     Indication: BRONCHITIS
     Route: 055
     Dates: start: 20121016
  2. FLOVENT [Concomitant]
  3. VITAMINS [Concomitant]
  4. ANTIBIOTICS [Concomitant]
  5. PREDNISONE [Concomitant]

REACTIONS (1)
  - Drug ineffective [Not Recovered/Not Resolved]
